FAERS Safety Report 19019531 (Version 1)
Quarter: 2021Q1

REPORT INFORMATION
  Report Type: Spontaneous
  Country: US (occurrence: US)
  Receive Date: 20210317
  Receipt Date: 20210317
  Transmission Date: 20210420
  Serious: No
  Sender: FDA-Public Use
  Company Number: None

PATIENT
  Age: 59 Year
  Sex: Female
  Weight: 81 kg

DRUGS (9)
  1. ATENOLOL. [Concomitant]
     Active Substance: ATENOLOL
  2. NEURONTIN [Concomitant]
     Active Substance: GABAPENTIN
  3. VITAMIN D [Concomitant]
     Active Substance: VITAMIN D NOS
  4. CLARITIN [Concomitant]
     Active Substance: LORATADINE
  5. OMEPRAZOLE. [Concomitant]
     Active Substance: OMEPRAZOLE
  6. ACYCLOVIR 400MG [Suspect]
     Active Substance: ACYCLOVIR
     Indication: IMMUNOSUPPRESSION
     Dosage: ?          QUANTITY:180 TABLET(S);?
     Route: 048
     Dates: start: 20210226, end: 20210317
  7. ATOVAQUONE. [Concomitant]
     Active Substance: ATOVAQUONE
  8. MULTIVITAMIN [Concomitant]
     Active Substance: VITAMINS
  9. FLAXSEED [Concomitant]
     Active Substance: FLAX SEED

REACTIONS (3)
  - Nausea [None]
  - Diarrhoea [None]
  - Product substitution issue [None]

NARRATIVE: CASE EVENT DATE: 20210227
